FAERS Safety Report 12758371 (Version 5)
Quarter: 2018Q1

REPORT INFORMATION
  Report Type: Report from Study
  Country: US (occurrence: US)
  Receive Date: 20160919
  Receipt Date: 20180202
  Transmission Date: 20180508
  Serious: Yes (Hospitalization, Other)
  Sender: FDA-Public Use
  Company Number: US-ASTELLAS-2016US035649

PATIENT
  Sex: Male

DRUGS (3)
  1. ZYTIGA [Concomitant]
     Active Substance: ABIRATERONE ACETATE
     Indication: PRODUCT USED FOR UNKNOWN INDICATION
     Dosage: UNK UNK, UNKNOWN FREQ.
     Route: 065
  2. ENZALUTAMIDE [Suspect]
     Active Substance: ENZALUTAMIDE
     Route: 048
  3. ENZALUTAMIDE [Suspect]
     Active Substance: ENZALUTAMIDE
     Indication: HORMONE-REFRACTORY PROSTATE CANCER
     Route: 048

REACTIONS (5)
  - Transient ischaemic attack [Recovered/Resolved]
  - Prostatic specific antigen increased [Not Recovered/Not Resolved]
  - Head injury [Recovered/Resolved]
  - Fall [Recovered/Resolved]
  - Thrombosis [Recovered/Resolved]
